FAERS Safety Report 5546436-7 (Version None)
Quarter: 2007Q4

REPORT INFORMATION
  Report Type: 
  Country: None (occurrence: None)
  Receive Date: 20071211
  Receipt Date: 20071203
  Transmission Date: 20080405
  Serious: Yes (Death, Hospitalization)
  Sender: FDA-Public Use
  Company Number: US-JNJFOC-20071106076

PATIENT
  Sex: Male

DRUGS (7)
  1. REMICADE [Suspect]
     Route: 042
  2. REMICADE [Suspect]
     Route: 042
  3. REMICADE [Suspect]
     Indication: RHEUMATOID ARTHRITIS
     Route: 042
  4. METHOTREXATE [Concomitant]
     Indication: RHEUMATOID ARTHRITIS
  5. NSAID [Concomitant]
     Indication: RHEUMATOID ARTHRITIS
  6. PREDNISONE [Concomitant]
     Indication: RHEUMATOID ARTHRITIS
  7. CELEBREX [Concomitant]
     Indication: RHEUMATOID ARTHRITIS

REACTIONS (8)
  - CARDIAC FAILURE CONGESTIVE [None]
  - CELLULITIS [None]
  - FALL [None]
  - PAIN [None]
  - QUADRIPARESIS [None]
  - RHEUMATOID ARTHRITIS [None]
  - RHEUMATOID LUNG [None]
  - SPINAL OSTEOARTHRITIS [None]
